FAERS Safety Report 20776247 (Version 1)
Quarter: 2022Q2

REPORT INFORMATION
  Report Type: Spontaneous
  Country: US (occurrence: None)
  Receive Date: 20220502
  Receipt Date: 20220502
  Transmission Date: 20220720
  Serious: Yes (Other)
  Sender: FDA-Public Use
  Company Number: None

PATIENT

DRUGS (2)
  1. VIGAMOX [Suspect]
     Active Substance: MOXIFLOXACIN HYDROCHLORIDE
     Indication: Eye disorder
     Dosage: FREQUENCY : 4 TIMES A DAY;?
     Route: 031
     Dates: start: 20220308, end: 20220315
  2. PREDNISOLONE ACETATE [Suspect]
     Active Substance: PREDNISOLONE ACETATE
     Indication: Eye disorder
     Dosage: FREQUENCY : 4 TIMES A DAY;?
     Route: 031
     Dates: start: 20220308, end: 20220308

REACTIONS (1)
  - Eye pain [None]

NARRATIVE: CASE EVENT DATE: 20220308
